FAERS Safety Report 8439745-5 (Version None)
Quarter: 2012Q2

REPORT INFORMATION
  Report Type: 
  Country: None (occurrence: None)
  Receive Date: 20120323
  Receipt Date: 20110727
  Transmission Date: 20120825
  Serious: Yes (Hospitalization, Other)
  Sender: FDA-Public Use
  Company Number: 163-21880-11053907

PATIENT
  Age: 78 Year
  Sex: Female
  Weight: 50.3493 kg

DRUGS (15)
  1. VANCOMYCIN [Concomitant]
  2. LENALIDOMIDE [Suspect]
     Indication: MULTIPLE MYELOMA
     Dosage: 25 MG, 21/7, PO
     Route: 048
     Dates: start: 20110318
  3. ZOMETA [Suspect]
     Indication: PRODUCT USED FOR UNKNOWN INDICATION
  4. ACYCLOVIR [Concomitant]
  5. FLUCONAZOLE [Concomitant]
  6. LISINOPRIL [Concomitant]
  7. PROMETHAZINE HCL [Concomitant]
  8. MECLIZINE HCL (MECLOZINE HYDROCHLORIDE) [Concomitant]
  9. BACTRIM DS [Concomitant]
  10. SULFAMETH/TMP [Concomitant]
  11. DILTIAZEM [Concomitant]
  12. VITAMIN D [Concomitant]
  13. TRAMADOL HCL [Concomitant]
  14. WARFARIN SODIUM [Concomitant]
  15. DEXAMETHASONE [Concomitant]

REACTIONS (3)
  - METASTASES TO BONE [None]
  - INTERNATIONAL NORMALISED RATIO INCREASED [None]
  - CELLULITIS STAPHYLOCOCCAL [None]
